FAERS Safety Report 9703536 (Version 2)
Quarter: 2014Q1

REPORT INFORMATION
  Report Type: Spontaneous
  Country: US (occurrence: US)
  Receive Date: 20131122
  Receipt Date: 20140218
  Transmission Date: 20141002
  Serious: Yes (Other)
  Sender: FDA-Public Use
  Company Number: US-JNJFOC-20131110938

PATIENT
  Sex: Female
  Weight: 100.79 kg

DRUGS (11)
  1. REMICADE [Suspect]
     Indication: COLITIS ULCERATIVE
     Route: 042
     Dates: start: 20140117
  2. REMICADE [Suspect]
     Indication: COLITIS ULCERATIVE
     Route: 042
     Dates: start: 20131115
  3. REMICADE [Suspect]
     Indication: COLITIS ULCERATIVE
     Route: 042
     Dates: start: 20121115
  4. REMICADE [Suspect]
     Indication: COLITIS ULCERATIVE
     Route: 042
     Dates: start: 20100224
  5. REMICADE [Suspect]
     Indication: COLITIS ULCERATIVE
     Route: 042
     Dates: start: 200503
  6. TRAMADOL [Concomitant]
     Indication: PAIN
     Route: 048
  7. CYMBALTA [Concomitant]
     Route: 048
  8. IMITREX [Concomitant]
     Dosage: AS NECESSARY
     Route: 048
  9. HYOSCYAMINE [Concomitant]
     Route: 048
     Dates: start: 20131207
  10. TYLENOL [Concomitant]
     Dosage: ONCE IN EVERY 4 TO 6 HOURS.
     Route: 048
     Dates: start: 19900101
  11. PANTOPRAZOLE SODIUM [Concomitant]
     Route: 048

REACTIONS (1)
  - Cervical dysplasia [Recovering/Resolving]
